FAERS Safety Report 9328672 (Version 1)
Quarter: 2013Q2

REPORT INFORMATION
  Report Type: Spontaneous
  Country: US (occurrence: US)
  Receive Date: 20130604
  Receipt Date: 20130604
  Transmission Date: 20140414
  Serious: Yes (Other)
  Sender: FDA-Public Use
  Company Number: US-SANOFI-AVENTIS-2012SA027765

PATIENT
  Age: 60 Year
  Sex: Female
  Weight: 94.54 kg

DRUGS (10)
  1. LANTUS [Suspect]
     Indication: TYPE 2 DIABETES MELLITUS
     Dosage: DOSE:30 UNIT(S)
     Route: 058
     Dates: start: 20080422
  2. LANTUS [Suspect]
     Indication: TYPE 2 DIABETES MELLITUS
     Dosage: DOSE:30 UNIT(S)
     Route: 058
     Dates: start: 20080422
  3. LANTUS [Suspect]
     Indication: TYPE 2 DIABETES MELLITUS
     Dosage: DOSE:30 UNIT(S)
     Route: 058
     Dates: start: 20080422
  4. LANTUS [Suspect]
     Indication: TYPE 2 DIABETES MELLITUS
     Dosage: DOSE:30 UNIT(S)
     Route: 058
     Dates: start: 20080422
  5. HUMALOG [Suspect]
     Dosage: DOSE:11 UNIT(S)
     Route: 065
  6. WELLBUTRIN - SLOW RELEASE [Concomitant]
     Indication: DEPRESSION
     Route: 048
     Dates: start: 2001
  7. BENICAR [Concomitant]
     Indication: HYPERTENSION
     Dosage: 40/25
     Dates: start: 2001
  8. METOPROLOL [Concomitant]
     Indication: HYPERTENSION
     Route: 048
     Dates: start: 2001
  9. PLAVIX [Concomitant]
     Indication: CORONARY ARTERIAL STENT INSERTION
     Dates: start: 2008
  10. TOPIRAMATE [Concomitant]
     Indication: NEUROPATHY PERIPHERAL
     Route: 048

REACTIONS (2)
  - Hypoglycaemia [Unknown]
  - Oedema peripheral [Unknown]
